FAERS Safety Report 20119327 (Version 2)
Quarter: 2022Q1

REPORT INFORMATION
  Report Type: Spontaneous
  Country: US (occurrence: US)
  Receive Date: 20211126
  Receipt Date: 20220203
  Transmission Date: 20220423
  Serious: Yes (Other)
  Sender: FDA-Public Use
  Company Number: US-BIOVITRUM-2021US11135

PATIENT
  Sex: Female
  Weight: 10 kg

DRUGS (21)
  1. SYNAGIS [Suspect]
     Active Substance: PALIVIZUMAB
     Indication: Low birth weight baby
     Route: 030
  2. PREVACID [Concomitant]
     Active Substance: LANSOPRAZOLE
     Dosage: RAP DR
  3. SILDENAFIL CITRATE [Concomitant]
     Active Substance: SILDENAFIL CITRATE
  4. LEVOFLOXACIN [Concomitant]
     Active Substance: LEVOFLOXACIN
  5. PREDNISONE [Concomitant]
     Active Substance: PREDNISONE
     Dosage: DS PK
  6. MYLANTA GAS MINIS [Concomitant]
  7. LASIX [Concomitant]
     Active Substance: FUROSEMIDE
  8. DULERA [Concomitant]
     Active Substance: FORMOTEROL FUMARATE DIHYDRATE\MOMETASONE FUROATE
     Dosage: 100-5 MCG HFA AER AD
  9. HERBALS [Concomitant]
     Active Substance: HERBALS
  10. ACETYLCYSTEINE [Concomitant]
     Active Substance: ACETYLCYSTEINE
  11. SYNAGIS [Suspect]
     Active Substance: PALIVIZUMAB
     Indication: Lung disorder
  12. CHILDRENS TYLENOL [Concomitant]
     Active Substance: ACETAMINOPHEN
  13. PROBIOTIC + ACIDOPHILUS [Concomitant]
  14. CAYSTON [Concomitant]
     Active Substance: AZTREONAM
  15. SYNAGIS [Suspect]
     Active Substance: PALIVIZUMAB
     Indication: Dependence on respirator
  16. ALBUTEROL SULFATE [Concomitant]
     Active Substance: ALBUTEROL SULFATE
  17. SYNAGIS [Suspect]
     Active Substance: PALIVIZUMAB
     Indication: Tracheostomy
  18. HYPOTONIC SALINE [Concomitant]
  19. DEXAMETHASONE\TOBRAMYCIN [Concomitant]
     Active Substance: DEXAMETHASONE\TOBRAMYCIN
  20. ACETYLCYSTEINE POWDER [Concomitant]
  21. SODIUM CHLORIDE-WATER 0.9 % [Concomitant]

REACTIONS (1)
  - Pneumonia [Unknown]
